FAERS Safety Report 5534960-2 (Version None)
Quarter: 2007Q4

REPORT INFORMATION
  Report Type: 
  Country: None (occurrence: None)
  Receive Date: 20071130
  Receipt Date: 20071120
  Transmission Date: 20080405
  Serious: Yes (Hospitalization)
  Sender: FDA-Public Use
  Company Number: 2007-03766

PATIENT
  Age: 53 Year
  Sex: Male
  Weight: 80 kg

DRUGS (2)
  1. VELCADE    (VELCADE) (BORTEXOMIB) [Suspect]
     Indication: MULTIPLE MYELOMA
     Dosage: 2.50 MG/M2, INTRAVENOUS
     Route: 042
     Dates: start: 20071009, end: 20071030
  2. DEXAMETHASONE TAB [Suspect]
     Indication: MULTIPLE MYELOMA
     Dosage: 40.00 MG
     Dates: start: 20071009, end: 20071030

REACTIONS (2)
  - DEHYDRATION [None]
  - HYPERGLYCAEMIA [None]
